FAERS Safety Report 5498025-0 (Version None)
Quarter: 2007Q4

REPORT INFORMATION
  Report Type: 
  Country: None (occurrence: None)
  Receive Date: 20071025
  Receipt Date: 20071015
  Transmission Date: 20080405
  Serious: Yes (Other)
  Sender: FDA-Public Use
  Company Number: JP-JNJFOC-20071005302

PATIENT
  Age: 9 Year
  Sex: Male

DRUGS (1)
  1. ITRIZOLE [Suspect]
     Indication: TINEA CAPITIS
     Route: 048

REACTIONS (2)
  - EOSINOPHILIA [None]
  - WHITE BLOOD CELL COUNT DECREASED [None]
